FAERS Safety Report 15823881 (Version 1)
Quarter: 2019Q1

REPORT INFORMATION
  Report Type: Spontaneous
  Country: US (occurrence: US)
  Receive Date: 20190114
  Receipt Date: 20190114
  Transmission Date: 20190417
  Serious: Yes (Hospitalization, Other)
  Sender: FDA-Public Use
  Company Number: US-HALOZYME THERAPEUTICS, INC.-2019-US-HYL-00022

PATIENT
  Sex: Female
  Weight: 8 kg

DRUGS (2)
  1. HYLENEX RECOMBINANT [Suspect]
     Active Substance: HYALURONIDASE (HUMAN RECOMBINANT)
     Indication: DEHYDRATION
     Route: 058
  2. NORMAL SALINE [Suspect]
     Active Substance: SODIUM CHLORIDE
     Route: 058

REACTIONS (2)
  - Abscess bacterial [Recovering/Resolving]
  - Cellulitis [Recovering/Resolving]
